FAERS Safety Report 7003550-7 (Version None)
Quarter: 2010Q3

REPORT INFORMATION
  Report Type: 
  Country: None (occurrence: None)
  Receive Date: 20100916
  Receipt Date: 20100901
  Transmission Date: 20110219
  Serious: Yes (Other)
  Sender: FDA-Public Use
  Company Number: 1000016136

PATIENT
  Age: 27 Year
  Sex: Female

DRUGS (3)
  1. CITALOPRAM HYDROBROMIDE [Suspect]
     Indication: DEPRESSION
     Dosage: 20 MG (20 MG, 1 IN 1 D), ORAL
     Route: 048
     Dates: start: 20100325
  2. EFEXOR ER (VENLAFAXINE HYDROCHLORIDE) (TABLETS) [Suspect]
     Indication: DEPRESSION
     Dosage: 150 MG (150 MG, 1 IN 1 D), ORAL; 75 MG (75 MG, 1 IN 1 D), ORAL
     Route: 048
     Dates: end: 20100301
  3. LEXOTANIL (BROMAZEPAM) (TABLETS) [Suspect]
     Indication: ANXIETY DISORDER
     Dosage: (1.5 MG, AS REQUIRED), ORAL
     Route: 048
     Dates: start: 20090101, end: 20100101

REACTIONS (5)
  - ANXIETY [None]
  - CONDITION AGGRAVATED [None]
  - DEPRESSION [None]
  - DRUG EXPOSURE DURING PREGNANCY [None]
  - PREGNANCY [None]
